FAERS Safety Report 9358167 (Version 1)
Quarter: 2013Q2

REPORT INFORMATION
  Report Type: Spontaneous
  Country: US (occurrence: None)
  Receive Date: 20130619
  Receipt Date: 20130619
  Transmission Date: 20140414
  Serious: Yes (Other)
  Sender: FDA-Public Use
  Company Number: None

PATIENT
  Age: 54 Year
  Sex: Female

DRUGS (5)
  1. COPAXONE? [Suspect]
     Indication: MULTIPLE SCLEROSIS
     Route: 058
     Dates: start: 200512
  2. VENLAFAXINE [Concomitant]
  3. DITROPAN XL [Concomitant]
  4. OMEPRAZOLE [Concomitant]
  5. PROVIGIL [Concomitant]

REACTIONS (1)
  - Injection site infection [None]
